FAERS Safety Report 8096926-0 (Version None)
Quarter: 2012Q1

REPORT INFORMATION
  Report Type: 
  Country: None (occurrence: None)
  Receive Date: 20120129
  Receipt Date: 20111129
  Transmission Date: 20120608
  Serious: No
  Sender: FDA-Public Use
  Company Number: US-ABBOTT-11P-163-0731167-00

PATIENT
  Age: 47 Year
  Sex: Female

DRUGS (1)
  1. HUMIRA [Suspect]
     Indication: PSORIASIS
     Dosage: DAY 1
     Route: 058
     Dates: start: 20110607

REACTIONS (5)
  - JOINT SWELLING [None]
  - PSORIASIS [None]
  - INJECTION SITE PAIN [None]
  - CONTUSION [None]
  - TENDERNESS [None]
